FAERS Safety Report 8174178-0 (Version None)
Quarter: 2012Q1

REPORT INFORMATION
  Report Type: 
  Country: None (occurrence: None)
  Receive Date: 20120224
  Receipt Date: 20120214
  Transmission Date: 20120608
  Serious: Yes (Other)
  Sender: FDA-Public Use
  Company Number: 08-AUR-02005

PATIENT
  Age: 67 Year
  Sex: Female

DRUGS (7)
  1. PLAVIX [Suspect]
     Indication: MYOCARDIAL INFARCTION
     Dates: start: 20060101
  2. ASPIRIN [Suspect]
     Indication: MYOCARDIAL INFARCTION
  3. PREGABALIN [Suspect]
     Indication: TRIGEMINAL NEURALGIA
     Dosage: 600 MG (300 MG,2 IN 1 D)
     Dates: start: 20060101
  4. SIMVASTATIN [Suspect]
     Indication: MYOCARDIAL INFARCTION
  5. BISOPROLOL FUMARATE [Suspect]
     Indication: MYOCARDIAL INFARCTION
  6. ALTACE [Suspect]
     Indication: MYOCARDIAL INFARCTION
     Dosage: (1.25 MG)
  7. CLOPIDOGREL [Suspect]
     Indication: MYOCARDIAL INFARCTION

REACTIONS (3)
  - DRUG INTERACTION [None]
  - MYOCARDIAL INFARCTION [None]
  - DRUG INEFFECTIVE [None]
